FAERS Safety Report 9522667 (Version 1)
Quarter: 2013Q3

REPORT INFORMATION
  Report Type: Spontaneous
  Country: RU (occurrence: RU)
  Receive Date: 20130913
  Receipt Date: 20130913
  Transmission Date: 20140515
  Serious: Yes (Life-Threatening, Hospitalization, Other)
  Sender: FDA-Public Use
  Company Number: RU-ASTRAZENECA-2013SE68872

PATIENT
  Age: 24730 Day
  Sex: Male
  Weight: 64 kg

DRUGS (6)
  1. BRILINTA [Suspect]
     Indication: MYOCARDIAL INFARCTION
     Route: 048
     Dates: start: 20130821, end: 20130828
  2. BIDOP [Concomitant]
  3. PECTROL [Concomitant]
  4. ASPICOR [Concomitant]
  5. CORDARONE [Concomitant]
  6. MERTINIL [Concomitant]

REACTIONS (3)
  - Ischaemic stroke [Unknown]
  - Myocardial infarction [Recovering/Resolving]
  - Ventricular fibrillation [Unknown]
